FAERS Safety Report 18560687 (Version 1)
Quarter: 2020Q4

REPORT INFORMATION
  Report Type: Spontaneous
  Country: US (occurrence: US)
  Receive Date: 20201130
  Receipt Date: 20201130
  Transmission Date: 20210114
  Serious: Yes (Other)
  Sender: FDA-Public Use
  Company Number: US-PURDUE-USA-2020-0179618

PATIENT
  Sex: Male

DRUGS (2)
  1. ADVIL [Suspect]
     Active Substance: IBUPROFEN
     Indication: PAIN
     Dosage: UNKNOWN
     Route: 065
  2. OXYCONTIN [Suspect]
     Active Substance: OXYCODONE HYDROCHLORIDE
     Indication: PAIN
     Dosage: UNKNOWN
     Route: 048

REACTIONS (9)
  - Cardiac arrest [Unknown]
  - Liver injury [Unknown]
  - Loss of consciousness [Unknown]
  - Renal failure [Unknown]
  - Overdose [Unknown]
  - Neuropathy peripheral [Unknown]
  - Compartment syndrome [Unknown]
  - Drug dependence [Unknown]
  - Depression [Unknown]

NARRATIVE: CASE EVENT DATE: 201605
